FAERS Safety Report 21393507 (Version 1)
Quarter: 2022Q3

REPORT INFORMATION
  Report Type: Spontaneous
  Country: None (occurrence: DE)
  Receive Date: 20220929
  Receipt Date: 20220929
  Transmission Date: 20221026
  Serious: Yes (Hospitalization)
  Sender: FDA-Public Use
  Company Number: DE-Ascend Therapeutics US, LLC-2133329

PATIENT
  Age: 63 Year
  Sex: Female
  Weight: 70 kg

DRUGS (4)
  1. ESTROGEL [Suspect]
     Active Substance: ESTRADIOL
     Indication: Product used for unknown indication
     Route: 065
  2. ESTROGEL [Suspect]
     Active Substance: ESTRADIOL
  3. ESTRADIOL [Suspect]
     Active Substance: ESTRADIOL
     Route: 065
  4. TRAMADOL [Suspect]
     Active Substance: TRAMADOL
     Route: 065

REACTIONS (7)
  - General physical health deterioration [Unknown]
  - Acute respiratory failure [Unknown]
  - Depressed level of consciousness [Unknown]
  - Status epilepticus [Unknown]
  - Tachycardia [Unknown]
  - Seizure [Unknown]
  - Disorientation [Unknown]
